FAERS Safety Report 21202239 (Version 1)
Quarter: 2022Q3

REPORT INFORMATION
  Report Type: Spontaneous
  Country: None (occurrence: CA)
  Receive Date: 20220811
  Receipt Date: 20220811
  Transmission Date: 20221026
  Serious: Yes (Hospitalization, Other)
  Sender: FDA-Public Use
  Company Number: CA-B.Braun Medical Inc.-2131731

PATIENT
  Age: 64 Year
  Weight: 69 kg

DRUGS (72)
  1. POTASSIUM CHLORIDE [Suspect]
     Active Substance: POTASSIUM CHLORIDE
  2. VITAMINS [Suspect]
     Active Substance: VITAMINS
  3. ASPIRIN [Suspect]
     Active Substance: ASPIRIN
  4. THYMOCYTE IMMUNE GLOBULIN NOS [Suspect]
     Active Substance: THYMOCYTE IMMUNE GLOBULIN NOS
  5. BACLOFEN [Suspect]
     Active Substance: BACLOFEN
  6. CALCIUM CARBONATE [Suspect]
     Active Substance: CALCIUM CARBONATE
  7. ZOPICLONE [Suspect]
     Active Substance: ZOPICLONE
  8. ATIVAN [Suspect]
     Active Substance: LORAZEPAM
  9. BACLOFEN [Suspect]
     Active Substance: BACLOFEN
  10. PROBIOTICS NOS [Suspect]
     Active Substance: PROBIOTICS NOS
  11. BIFIDOBACTERIUM BIFIDUM [Suspect]
     Active Substance: BIFIDOBACTERIUM BIFIDUM
  12. PROBIOTICS NOS [Suspect]
     Active Substance: PROBIOTICS NOS
  13. BROMHEXINE HYDROCHLORIDE [Suspect]
     Active Substance: BROMHEXINE HYDROCHLORIDE
  14. CALCIUM [Suspect]
     Active Substance: CALCIUM
  15. CALCIUM CARBONATE [Suspect]
     Active Substance: CALCIUM CARBONATE
  16. CLORPRENALINE HYDROCHLORIDE [Suspect]
     Active Substance: CLORPRENALINE HYDROCHLORIDE
  17. CREATINE [Suspect]
     Active Substance: CREATINE
  18. CREATINE [Suspect]
     Active Substance: CREATINE
  19. CYANOCOBALAMIN [Suspect]
     Active Substance: CYANOCOBALAMIN
  20. CYMBALTA [Suspect]
     Active Substance: DULOXETINE HYDROCHLORIDE
  21. .ALPHA.-TOCOPHEROL, D- [Suspect]
     Active Substance: .ALPHA.-TOCOPHEROL, D-
  22. DEXPANTHENOL [Suspect]
     Active Substance: DEXPANTHENOL
  23. DOCONEXENT\ICOSAPENT [Suspect]
     Active Substance: DOCONEXENT\ICOSAPENT
  24. DOCUSATE SODIUM [Suspect]
     Active Substance: DOCUSATE SODIUM
  25. MOMETASONE FUROATE [Suspect]
     Active Substance: MOMETASONE FUROATE
  26. ERGOCALCIFEROL [Suspect]
     Active Substance: ERGOCALCIFEROL
  27. FISH OIL [Suspect]
     Active Substance: FISH OIL
  28. FOLIC ACID [Suspect]
     Active Substance: FOLIC ACID
  29. FOSAMAX [Suspect]
     Active Substance: ALENDRONATE SODIUM
  30. FUROSEMIDE [Suspect]
     Active Substance: FUROSEMIDE
  31. GLICLAZIDE [Suspect]
     Active Substance: GLICLAZIDE
  32. HORSE CHESTNUT [Suspect]
     Active Substance: HORSE CHESTNUT
  33. HYDROMORPHONE [Suspect]
     Active Substance: HYDROMORPHONE
  34. HUMAN IMMUNOGLOBULIN G [Suspect]
     Active Substance: HUMAN IMMUNOGLOBULIN G
  35. IMODIUM [Suspect]
     Active Substance: LOPERAMIDE HYDROCHLORIDE
  36. LACTOBACILLUS ACIDOPHILUS [Suspect]
     Active Substance: LACTOBACILLUS ACIDOPHILUS
  37. LORATADINE [Suspect]
     Active Substance: LORATADINE
  38. LYRICA [Suspect]
     Active Substance: PREGABALIN
  39. MELATONIN [Suspect]
     Active Substance: MELATONIN
  40. MYCOPHENOLATE MOFETIL HYDROCHLORIDE [Suspect]
     Active Substance: MYCOPHENOLATE MOFETIL HYDROCHLORIDE
  41. MYCOPHENOLIC ACID [Suspect]
     Active Substance: MYCOPHENOLIC ACID
  42. NAPROXEN SODIUM [Suspect]
     Active Substance: NAPROXEN SODIUM
  43. NASONEX [Suspect]
     Active Substance: MOMETASONE FUROATE
  44. NIACINAMIDE [Suspect]
     Active Substance: NIACINAMIDE
  45. NICOTINAMIDE ZCF [Suspect]
     Active Substance: CUPRIC OXIDE\FOLIC ACID\NIACINAMIDE\ZINC OXIDE
  46. NORTRIPTYLINE HYDROCHLORIDE [Suspect]
     Active Substance: NORTRIPTYLINE HYDROCHLORIDE
  47. HYDROCHLOROTHIAZIDE [Suspect]
     Active Substance: HYDROCHLOROTHIAZIDE
  48. OMEGA-3 ACIDS [Suspect]
     Active Substance: OMEGA-3 FATTY ACIDS
  49. PREDNISONE [Suspect]
     Active Substance: PREDNISONE
  50. PYRIDOXINE [Suspect]
     Active Substance: PYRIDOXINE
  51. PYRIDOXINE HYDROCHLORIDE [Suspect]
     Active Substance: PYRIDOXINE HYDROCHLORIDE
  52. RANITIDINE HYDROCHLORIDE [Suspect]
     Active Substance: RANITIDINE HYDROCHLORIDE
  53. FISH OIL [Suspect]
     Active Substance: FISH OIL
  54. SENNA [Suspect]
     Active Substance: SENNA LEAF\SENNOSIDES\SENNOSIDES A AND B
  55. SENNOSIDES [Suspect]
     Active Substance: SENNOSIDES
  56. SENOKOT [Suspect]
     Active Substance: SENNOSIDES
  57. SULFAMETHOXAZOLE\TRIMETHOPRIM [Suspect]
     Active Substance: SULFAMETHOXAZOLE\TRIMETHOPRIM
  58. SULFAMETHOXAZOLE [Suspect]
     Active Substance: SULFAMETHOXAZOLE
  59. DULOXETINE [Suspect]
     Active Substance: DULOXETINE
  60. TIZANIDINE [Suspect]
     Active Substance: TIZANIDINE
  61. TIZANIDINE HYDROCHLORIDE [Suspect]
     Active Substance: TIZANIDINE HYDROCHLORIDE
  62. TRIAMTERENE [Suspect]
     Active Substance: TRIAMTERENE
  63. VITAMIN A [Suspect]
     Active Substance: VITAMIN A
  64. VITAMIN B COMPLEX [Suspect]
     Active Substance: CYANOCOBALAMIN\DEXPANTHENOL\NIACINAMIDE\PYRIDOXINE HYDROCHLORIDE\RIBOFLAVIN 5^-PHOSPHATE SODIUM\THIA
  65. VITAMIN C [Suspect]
     Active Substance: ASCORBIC ACID
  66. CHOLECALCIFEROL [Suspect]
     Active Substance: CHOLECALCIFEROL
  67. VITAMIN D3 [Suspect]
     Active Substance: CHOLECALCIFEROL
  68. VITAMIN E [Suspect]
     Active Substance: .ALPHA.-TOCOPHEROL
  69. .ALPHA.-TOCOPHEROL [Suspect]
     Active Substance: .ALPHA.-TOCOPHEROL
  70. WARFARIN [Suspect]
     Active Substance: WARFARIN
  71. ZANTAC [Suspect]
     Active Substance: RANITIDINE HYDROCHLORIDE
  72. ZOPICLONE [Suspect]
     Active Substance: ZOPICLONE

REACTIONS (5)
  - Coma [Recovered/Resolved]
  - Gastrooesophageal reflux disease [Recovered/Resolved]
  - Pneumonia aspiration [Recovered/Resolved]
  - Somnolence [Recovered/Resolved]
  - Underdose [Recovered/Resolved]
